FAERS Safety Report 9295339 (Version 1)
Quarter: 2013Q1

REPORT INFORMATION
  Report Type: Spontaneous
  Country: US (occurrence: None)
  Receive Date: 20121227
  Receipt Date: 20121227
  Transmission Date: 20140127
  Serious: No
  Sender: FDA-Public Use
  Company Number: PHEH2012US017681

PATIENT
  Age: 36 Year
  Sex: Female

DRUGS (1)
  1. AFINITOR [Suspect]
     Indication: TUBEROUS SCLEROSIS
     Route: 048
     Dates: start: 20120809, end: 20121116

REACTIONS (11)
  - Pneumonia [None]
  - Menstruation irregular [None]
  - Menstruation delayed [None]
  - Oligomenorrhoea [None]
  - Acne [None]
  - Malaise [None]
  - Cough [None]
  - Oropharyngeal pain [None]
  - Oral herpes [None]
  - Ear pain [None]
  - Abdominal pain [None]
